FAERS Safety Report 22092923 (Version 3)
Quarter: 2023Q2

REPORT INFORMATION
  Report Type: Report from Study
  Country: DE (occurrence: DE)
  Receive Date: 20230314
  Receipt Date: 20230523
  Transmission Date: 20230722
  Serious: Yes (Other)
  Sender: FDA-Public Use
  Company Number: DE-AUROBINDO-AUR-APL-2023-011167

PATIENT
  Sex: Male

DRUGS (9)
  1. VINCRISTINE SULFATE [Suspect]
     Active Substance: VINCRISTINE SULFATE
     Indication: B-cell lymphoma
     Dosage: 289 MILLIGRAM, FOUR TIMES/DAY(FOR 72 DAY(S))
     Route: 042
     Dates: start: 20180221, end: 20180503
  2. CYCLOPHOSPHAMIDE [Suspect]
     Active Substance: CYCLOPHOSPHAMIDE
     Indication: B-cell lymphoma
     Dosage: 1305 MILLIGRAM, FOUR TIMES/DAY
     Route: 042
     Dates: start: 20180221, end: 20180503
  3. PREDNISOLONE [Suspect]
     Active Substance: PREDNISOLONE
     Indication: B-cell lymphoma
     Dosage: 587.5 MILLIGRAM, FOUR TIMES/DAY(FOR 79 DAY(S))
     Route: 048
     Dates: start: 20180221, end: 20180510
  4. DOXORUBICIN [Suspect]
     Active Substance: DOXORUBICIN
     Indication: B-cell lymphoma
     Dosage: 87 MILLIGRAM, FOUR TIMES/DAY(FOR 72 DAY(S))
     Route: 042
     Dates: start: 20180221, end: 20180503
  5. LEUCOVORIN [Suspect]
     Active Substance: LEUCOVORIN
     Indication: Product used for unknown indication
     Dosage: UNK
     Route: 065
  6. PEGFILGRASTIM [Suspect]
     Active Substance: PEGFILGRASTIM
     Indication: B-cell lymphoma
     Dosage: 6 MILLIGRAM, FOUR TIMES/DAY(FOR 72 DAY(S))
     Route: 058
     Dates: start: 20180224, end: 20180506
  7. RITUXIMAB [Suspect]
     Active Substance: RITUXIMAB
     Indication: B-cell lymphoma
     Dosage: 653 MILLIGRAM, TWO TIMES A DAY (243 DAY(S))
     Route: 042
     Dates: start: 20180216, end: 20181016
  8. ASPIRIN [Concomitant]
     Active Substance: ASPIRIN
     Indication: Anticoagulant therapy
     Dosage: 100 MILLIGRAM, ONCE A DAY
     Route: 048
     Dates: start: 2020
  9. PANTOPRAZOLE [Concomitant]
     Active Substance: PANTOPRAZOLE
     Indication: Antacid therapy
     Dosage: UNK UNK, ONCE A DAY
     Route: 048
     Dates: start: 2022

REACTIONS (1)
  - Coronavirus infection [Recovered/Resolved]

NARRATIVE: CASE EVENT DATE: 20220815
